FAERS Safety Report 22145761 (Version 1)
Quarter: 2023Q1

REPORT INFORMATION
  Report Type: Spontaneous
  Country: FR (occurrence: FR)
  Receive Date: 20230328
  Receipt Date: 20230328
  Transmission Date: 20230418
  Serious: Yes (Other)
  Sender: FDA-Public Use
  Company Number: None

PATIENT
  Age: 52 Year
  Sex: Female

DRUGS (2)
  1. CAPECITABINE [Suspect]
     Active Substance: CAPECITABINE
     Indication: Adenocarcinoma of colon
     Dates: start: 20230201
  2. OXALIPLATIN [Concomitant]
     Active Substance: OXALIPLATIN
     Indication: Adenocarcinoma of colon
     Dates: start: 20230201

REACTIONS (2)
  - Rhabdomyolysis [Not Recovered/Not Resolved]
  - Arteriospasm coronary [Not Recovered/Not Resolved]

NARRATIVE: CASE EVENT DATE: 20230201
